FAERS Safety Report 4333607-0 (Version None)
Quarter: 2004Q2

REPORT INFORMATION
  Report Type: 
  Country: None (occurrence: None)
  Receive Date: 20040406
  Receipt Date: 20040323
  Transmission Date: 20050107
  Serious: Yes (Hospitalization, Other)
  Sender: FDA-Public Use
  Company Number: 2004S1000856

PATIENT
  Age: 81 Year
  Sex: Female
  Weight: 43.9989 kg

DRUGS (1)
  1. EXTENDED PHENYTOIN SODIUM [Suspect]
     Indication: GRAND MAL CONVULSION
     Dosage: SEE IMAGE; 2-3 TIMES PER DAY
     Dates: start: 20030501, end: 20040322

REACTIONS (3)
  - ANTICONVULSANT DRUG LEVEL BELOW THERAPEUTIC [None]
  - CELLULITIS [None]
  - CONVULSION [None]
